FAERS Safety Report 10261743 (Version 1)
Quarter: 2014Q2

REPORT INFORMATION
  Report Type: Spontaneous
  Country: US (occurrence: US)
  Receive Date: 20140626
  Receipt Date: 20140626
  Transmission Date: 20141212
  Serious: Yes (Other)
  Sender: FDA-Public Use
  Company Number: US-RB-066944-14

PATIENT
  Age: 88 Year
  Sex: Female

DRUGS (2)
  1. MUCINEX [Suspect]
     Indication: BRONCHIECTASIS
     Route: 048
  2. MUCINEX [Suspect]
     Dosage: FOR 10 DAYS
     Route: 048

REACTIONS (4)
  - Muscle spasms [Not Recovered/Not Resolved]
  - Abdominal pain upper [Not Recovered/Not Resolved]
  - Off label use [Not Recovered/Not Resolved]
  - Incorrect drug administration duration [Not Recovered/Not Resolved]
